FAERS Safety Report 11781546 (Version 1)
Quarter: 2015Q4

REPORT INFORMATION
  Report Type: Report from Study
  Country: JP (occurrence: JP)
  Receive Date: 20151126
  Receipt Date: 20151126
  Transmission Date: 20160305
  Serious: Yes (Hospitalization)
  Sender: FDA-Public Use
  Company Number: JP-ASTRAZENECA-2015SE85580

PATIENT
  Age: 23516 Day
  Sex: Female
  Weight: 48 kg

DRUGS (23)
  1. SOLDEM 3A [Concomitant]
     Active Substance: CARBOHYDRATES\POTASSIUM CHLORIDE\SODIUM CHLORIDE\SODIUM LACTATE
     Indication: PROPHYLAXIS
     Route: 042
  2. HIRUDOID CREAM [Concomitant]
     Route: 003
     Dates: start: 20150821
  3. HIRUDOID LOTION [Concomitant]
     Route: 003
     Dates: start: 20150821
  4. SENNA [Concomitant]
     Active Substance: SENNA LEAF\SENNOSIDES\SENNOSIDES A AND B
     Route: 048
     Dates: start: 20150821
  5. MAGNEVIST [Concomitant]
     Active Substance: GADOPENTETATE DIMEGLUMINE
     Route: 048
     Dates: start: 20150818
  6. TAGRISSO [Suspect]
     Active Substance: OSIMERTINIB
     Indication: NON-SMALL CELL LUNG CANCER METASTATIC
     Route: 048
     Dates: start: 20150819, end: 20150831
  7. ALESION [Concomitant]
     Active Substance: EPINASTINE HYDROCHLORIDE
     Route: 048
     Dates: start: 20150821
  8. ZOSYN [Concomitant]
     Active Substance: PIPERACILLIN SODIUM\TAZOBACTAM SODIUM
     Indication: PROPHYLAXIS
     Route: 042
  9. OTSUKA NORMAL SALINE [Concomitant]
     Route: 042
     Dates: start: 20150812
  10. LOPERAMIDE HYDROCHLORIDE. [Concomitant]
     Active Substance: LOPERAMIDE HYDROCHLORIDE
     Dosage: 1 CAPSULE AS REQUIRED
     Route: 048
  11. DERMOSOL DP [Concomitant]
     Route: 003
     Dates: start: 20150821
  12. MAGMITT [Concomitant]
     Active Substance: MAGNESIUM OXIDE
     Route: 048
     Dates: start: 20150821
  13. CALONAL [Concomitant]
     Active Substance: ACETAMINOPHEN
     Route: 048
  14. ISOTONIC SODIUM CHLORIDE SOLUTION [Concomitant]
     Active Substance: SODIUM CHLORIDE
     Route: 042
  15. ISOTONIC SODIUM CHLORIDE SOLUTION [Concomitant]
     Active Substance: SODIUM CHLORIDE
     Route: 042
  16. IOHEXOL [Concomitant]
     Active Substance: IOHEXOL
     Route: 042
  17. MIYA-BM [Concomitant]
     Active Substance: CLOSTRIDIUM BUTYRICUM SPORES STRAIN M-55
     Dosage: 3 TABLETS THREE TIMES A DAY
     Route: 048
  18. HACHIAZULE GARGLE [Concomitant]
     Route: 051
     Dates: start: 20150826
  19. URSODEOXYCHOLIC ACID [Concomitant]
     Active Substance: URSODIOL
     Route: 048
  20. SOLACET F [Concomitant]
     Indication: PROPHYLAXIS
     Route: 042
  21. TAGRISSO [Suspect]
     Active Substance: OSIMERTINIB
     Indication: NON-SMALL CELL LUNG CANCER METASTATIC
     Route: 048
     Dates: start: 20150907
  22. OPTIRAY [Concomitant]
     Active Substance: IOVERSOL
     Route: 042
     Dates: start: 20150812, end: 20150812
  23. BESOFTEN [Concomitant]
     Active Substance: SODIUM ALGINATE
     Route: 003

REACTIONS (3)
  - Pyrexia [Recovered/Resolved]
  - Aspartate aminotransferase increased [Recovered/Resolved]
  - Alanine aminotransferase increased [Recovered/Resolved]

NARRATIVE: CASE EVENT DATE: 20150831
